FAERS Safety Report 23896491 (Version 1)
Quarter: 2024Q2

REPORT INFORMATION
  Report Type: Spontaneous
  Country: US (occurrence: US)
  Receive Date: 20240524
  Receipt Date: 20240524
  Transmission Date: 20240716
  Serious: Yes (Other)
  Sender: FDA-Public Use
  Company Number: US-QUAGEN-2024QUALIT00135

PATIENT
  Age: 24 Year
  Sex: Female

DRUGS (3)
  1. LIDOCAINE [Suspect]
     Active Substance: LIDOCAINE
     Indication: Product use in unapproved indication
     Route: 065
  2. SOTALOL [Concomitant]
     Active Substance: SOTALOL
     Indication: Ventricular tachycardia
     Route: 065
  3. METOPROLOL [Concomitant]
     Active Substance: METOPROLOL
     Indication: Ventricular tachycardia
     Route: 065

REACTIONS (3)
  - Foetal heart rate decreased [Unknown]
  - Product use in unapproved indication [Unknown]
  - Exposure during pregnancy [Unknown]
